FAERS Safety Report 6048358-4 (Version None)
Quarter: 2009Q1

REPORT INFORMATION
  Report Type: 
  Country: None (occurrence: None)
  Receive Date: 20090123
  Receipt Date: 20090113
  Transmission Date: 20090719
  Serious: Yes (Life-Threatening)
  Sender: FDA-Public Use
  Company Number: GB-JNJFOC-20071204773

PATIENT
  Age: 69 Year
  Sex: Female

DRUGS (3)
  1. REMICADE [Suspect]
     Indication: CROHN'S DISEASE
     Dosage: EPISODIC;6 INFUSIONS
     Route: 042
  2. ADALIMUMAB [Suspect]
     Indication: CROHN'S DISEASE
     Dosage: MAINTENANCE
  3. METHOTREXATE [Suspect]
     Indication: CROHN'S DISEASE
     Dosage: 4 YEARS

REACTIONS (1)
  - NON-SMALL CELL LUNG CANCER [None]
